FAERS Safety Report 9052776 (Version 4)
Quarter: 2013Q2

REPORT INFORMATION
  Report Type: Spontaneous
  Country: BR (occurrence: BR)
  Receive Date: 20130207
  Receipt Date: 20130510
  Transmission Date: 20140414
  Serious: Yes (Other)
  Sender: FDA-Public Use
  Company Number: BR-PFIZER INC-2013044159

PATIENT
  Age: 83 Year
  Sex: Female

DRUGS (5)
  1. XALATAN [Suspect]
     Indication: INTRAOCULAR PRESSURE TEST ABNORMAL
     Dosage: 1 GTT A DAY
     Route: 047
     Dates: end: 2013
  2. XALATAN [Suspect]
  3. PURAN T4 [Concomitant]
  4. SIMVASTATIN [Concomitant]
  5. SOTALOL [Concomitant]

REACTIONS (3)
  - Cataract [Unknown]
  - Visual acuity reduced [Unknown]
  - Drug ineffective [Recovered/Resolved]
